FAERS Safety Report 16309563 (Version 1)
Quarter: 2019Q2

REPORT INFORMATION
  Report Type: Spontaneous
  Country: US (occurrence: US)
  Receive Date: 20190514
  Receipt Date: 20190514
  Transmission Date: 20190711
  Serious: No
  Sender: FDA-Public Use
  Company Number: US-BAYER-2019-094921

PATIENT

DRUGS (2)
  1. CHLOR [Concomitant]
  2. CLARITIN [Suspect]
     Active Substance: LORATADINE
     Dosage: UNK

REACTIONS (5)
  - Pruritus [Unknown]
  - Sneezing [Unknown]
  - Nasal congestion [None]
  - Cough [Unknown]
  - Ear pruritus [None]

NARRATIVE: CASE EVENT DATE: 201905
